FAERS Safety Report 6553465-3 (Version None)
Quarter: 2010Q1

REPORT INFORMATION
  Report Type: 
  Country: None (occurrence: None)
  Receive Date: 20100122
  Receipt Date: 20100111
  Transmission Date: 20100710
  Serious: Yes (Hospitalization, Other)
  Sender: FDA-Public Use
  Company Number: 234421J09USA

PATIENT
  Age: 52 Year
  Sex: Female
  Weight: 66 kg

DRUGS (11)
  1. REBIF [Suspect]
     Indication: MULTIPLE SCLEROSIS
     Dosage: 44 MCG, 3 IN 1 WEEKS, SUBCUTANEOUS
     Route: 058
     Dates: start: 20090616, end: 20091201
  2. TOPROL-XL [Concomitant]
  3. BENAZEPRIL HYDROCHLORIDE [Concomitant]
  4. PRILOSEC [Concomitant]
  5. WATER PILL (AQUA-BAN) [Concomitant]
  6. ZOCOR [Concomitant]
  7. DARVOCET [Concomitant]
  8. LYRICA [Concomitant]
  9. OXYGEN (OXYGEN) [Concomitant]
  10. NEBULIZER TREATMENTS (ANTI-ASTHMATICS) [Concomitant]
  11. ADVIL [Concomitant]

REACTIONS (9)
  - ASTHMA [None]
  - CARDIOMYOPATHY [None]
  - EJECTION FRACTION DECREASED [None]
  - HEART RATE ABNORMAL [None]
  - INFLUENZA LIKE ILLNESS [None]
  - LOCAL SWELLING [None]
  - LYMPHADENOPATHY [None]
  - PHARYNGITIS [None]
  - THROMBOSIS [None]
